FAERS Safety Report 20680196 (Version 1)
Quarter: 2022Q2

REPORT INFORMATION
  Report Type: Spontaneous
  Country: US (occurrence: None)
  Receive Date: 20220405
  Receipt Date: 20220405
  Transmission Date: 20220721
  Serious: Yes (Disabling, Other)
  Sender: FDA-Public Use
  Company Number: None

PATIENT
  Age: 46 Year
  Sex: Male
  Weight: 118.89 kg

DRUGS (1)
  1. PANTOPRAZOLE SODIUM [Suspect]
     Active Substance: PANTOPRAZOLE SODIUM
     Indication: Gastric disorder
     Dosage: OTHER QUANTITY : 90 TABLET(S);?
     Route: 048
     Dates: start: 20220113, end: 20220331

REACTIONS (16)
  - Arthralgia [None]
  - Gastrooesophageal reflux disease [None]
  - Abdominal distension [None]
  - Headache [None]
  - Nausea [None]
  - Joint swelling [None]
  - Diarrhoea [None]
  - Constipation [None]
  - Alopecia [None]
  - Pruritus [None]
  - Weight increased [None]
  - Vision blurred [None]
  - Product dispensing error [None]
  - Incorrect product administration duration [None]
  - Rheumatoid factor increased [None]
  - Vitamin D decreased [None]

NARRATIVE: CASE EVENT DATE: 20220301
